FAERS Safety Report 17500064 (Version 2)
Quarter: 2020Q1

REPORT INFORMATION
  Report Type: Report from Study
  Country: None (occurrence: FR)
  Receive Date: 20200305
  Receipt Date: 20200310
  Transmission Date: 20200409
  Serious: Yes (Hospitalization, Other)
  Sender: FDA-Public Use
  Company Number: FR-ABBVIE-20K-056-3302876-00

PATIENT
  Age: 69 Year
  Sex: Male
  Weight: 94 kg

DRUGS (1)
  1. VENCLYXTO [Suspect]
     Active Substance: VENETOCLAX
     Indication: CHRONIC LYMPHOCYTIC LEUKAEMIA
     Route: 048
     Dates: start: 20181121

REACTIONS (8)
  - Nausea [Unknown]
  - Pneumocystis jirovecii pneumonia [Unknown]
  - Dyspepsia [Unknown]
  - Traumatic lung injury [Unknown]
  - Weight decreased [Unknown]
  - Vomiting [Unknown]
  - Sepsis [Unknown]
  - Abdominal pain upper [Unknown]

NARRATIVE: CASE EVENT DATE: 201811
